FAERS Safety Report 9403393 (Version 1)
Quarter: 2013Q3

REPORT INFORMATION
  Report Type: Spontaneous
  Country: US (occurrence: US)
  Receive Date: 20130716
  Receipt Date: 20130716
  Transmission Date: 20140515
  Serious: Yes (Hospitalization)
  Sender: FDA-Public Use
  Company Number: US-BAXTER-2013BAX025019

PATIENT
  Age: 66 Year
  Sex: Male
  Weight: 68.1 kg

DRUGS (2)
  1. DIANEAL LOW CALCIUM [Suspect]
     Indication: PERITONEAL DIALYSIS
     Route: 033
     Dates: start: 201304, end: 201306
  2. DIANEAL LOW CALCIUM [Suspect]
     Route: 033
     Dates: start: 201306

REACTIONS (5)
  - Chest pain [Unknown]
  - Myocardial infarction [Recovering/Resolving]
  - Breathing-related sleep disorder [Unknown]
  - Dyspnoea [Recovering/Resolving]
  - Abdominal distension [Unknown]
